FAERS Safety Report 23111562 (Version 1)
Quarter: 2023Q4

REPORT INFORMATION
  Report Type: Spontaneous
  Country: CN (occurrence: CN)
  Receive Date: 20231026
  Receipt Date: 20231026
  Transmission Date: 20240109
  Serious: Yes (Hospitalization)
  Sender: FDA-Public Use
  Company Number: CN-ELI_LILLY_AND_COMPANY-CN201810011120

PATIENT
  Age: 88 Year
  Sex: Male
  Weight: 70 kg

DRUGS (3)
  1. HUMULIN 70/30 [Suspect]
     Active Substance: INSULIN HUMAN
     Indication: Diabetes mellitus
     Dosage: 22 U, EACH MORNING (BEFORE MEALS)
     Route: 058
     Dates: start: 20191210
  2. HUMULIN 70/30 [Suspect]
     Active Substance: INSULIN HUMAN
     Dosage: 26 U, EACH EVENING (BEFORE MEALS)
     Route: 058
     Dates: start: 20191210
  3. GLUCOBAY [Concomitant]
     Active Substance: ACARBOSE
     Indication: Blood glucose increased

REACTIONS (6)
  - Lung disorder [Unknown]
  - Cataract [Unknown]
  - Cardiac disorder [Unknown]
  - Hypertension [Unknown]
  - Incorrect dose administered [Unknown]
  - Hypoglycaemia [Recovered/Resolved]

NARRATIVE: CASE EVENT DATE: 20190101
